FAERS Safety Report 9090955 (Version 2)
Quarter: 2013Q1

REPORT INFORMATION
  Report Type: Spontaneous
  Country: TW (occurrence: TW)
  Receive Date: 20130219
  Receipt Date: 20130301
  Transmission Date: 20140127
  Serious: Yes (Other)
  Sender: FDA-Public Use
  Company Number: TW-AMGEN-TWNSP2013010267

PATIENT
  Age: 83 Year
  Sex: Female

DRUGS (1)
  1. ENBREL [Suspect]
     Indication: RHEUMATOID ARTHRITIS
     Dosage: 25MG BIW
     Route: 058
     Dates: start: 20080411, end: 20130125

REACTIONS (9)
  - Metastases to pleura [Unknown]
  - Metastases to lymph nodes [Unknown]
  - Renal neoplasm [Unknown]
  - Hepatic lesion [Unknown]
  - Osteoporosis [Unknown]
  - Pain in extremity [Unknown]
  - Muscular weakness [Unknown]
  - Lung neoplasm malignant [Unknown]
  - Chest pain [Unknown]
